FAERS Safety Report 19919727 (Version 1)
Quarter: 2021Q4

REPORT INFORMATION
  Report Type: Spontaneous
  Country: US (occurrence: US)
  Receive Date: 20211005
  Receipt Date: 20211005
  Transmission Date: 20220303
  Serious: No
  Sender: FDA-Public Use
  Company Number: US-PFIZER INC-202101185575

PATIENT
  Age: 74 Year
  Sex: Female

DRUGS (2)
  1. LYRICA [Suspect]
     Active Substance: PREGABALIN
     Dosage: UNK
  2. AMITIZA [Suspect]
     Active Substance: LUBIPROSTONE
     Dosage: UNK

REACTIONS (5)
  - Hypotension [Unknown]
  - Sleep disorder [Unknown]
  - Dizziness [Unknown]
  - Intentional dose omission [Unknown]
  - Intentional product misuse [Unknown]
